FAERS Safety Report 9889945 (Version 1)
Quarter: 2014Q1

REPORT INFORMATION
  Report Type: Spontaneous
  Country: US (occurrence: US)
  Receive Date: 20140212
  Receipt Date: 20140212
  Transmission Date: 20141002
  Serious: No
  Sender: FDA-Public Use
  Company Number: US-BIOGENIDEC-2014BI013243

PATIENT
  Age: 68 Year
  Sex: Female

DRUGS (14)
  1. HYDROCODONE-ACETAMINOPHEN [Concomitant]
  2. FLUROSEMIDE [Concomitant]
  3. AMIODARONE HCT (PRESUMED HYDROCHLORIDE) [Concomitant]
  4. METOPROLOL SUCCINATE ER [Concomitant]
  5. AVONEX [Suspect]
     Indication: MULTIPLE SCLEROSIS
     Route: 030
     Dates: start: 20130205
  6. POTASSIUM CHLORIDE CRYS ER [Concomitant]
  7. LISINOPRIL-HYDROCHLOROTHIAZIDE [Concomitant]
  8. VESICARE [Concomitant]
  9. LIPITOR [Concomitant]
  10. ASPRIN [Concomitant]
  11. XANAX [Concomitant]
  12. INSULIN [Concomitant]
  13. LANTUS SOLOSTAR [Concomitant]
  14. HUMALOG MIX 75/25 KWIKPEN [Concomitant]

REACTIONS (2)
  - Local swelling [Unknown]
  - Contusion [Unknown]
